FAERS Safety Report 10024364 (Version 1)
Quarter: 2014Q1

REPORT INFORMATION
  Report Type: Spontaneous
  Country: BE (occurrence: BE)
  Receive Date: 20140320
  Receipt Date: 20140320
  Transmission Date: 20141002
  Serious: Yes (Other)
  Sender: FDA-Public Use
  Company Number: PHHY2014BE032974

PATIENT
  Age: 64 Year
  Sex: Female

DRUGS (5)
  1. ACLASTA [Suspect]
     Dosage: YEARLY
     Route: 042
     Dates: start: 20080905
  2. ACLASTA [Suspect]
     Dosage: YEARLY
     Route: 042
     Dates: start: 201311
  3. OMEPRAZOLE [Concomitant]
     Indication: HIATUS HERNIA
     Dosage: UNK UKN, UNK
  4. EDRONAX [Concomitant]
     Dosage: UNK UKN, UNK
  5. WELLBUTRIN [Concomitant]
     Dosage: UNK UKN, UNK

REACTIONS (2)
  - Osteonecrosis of jaw [Not Recovered/Not Resolved]
  - Pain in jaw [Unknown]
